FAERS Safety Report 8160229-6 (Version None)
Quarter: 2012Q1

REPORT INFORMATION
  Report Type: 
  Country: None (occurrence: None)
  Receive Date: 20120223
  Receipt Date: 20120216
  Transmission Date: 20120608
  Serious: Yes (Other)
  Sender: FDA-Public Use
  Company Number: GB-ABBOTT-12P-167-0904860-00

PATIENT
  Age: 68 Year
  Sex: Male

DRUGS (1)
  1. FENOFIBRATE [Suspect]
     Indication: HYPERLIPIDAEMIA
     Dosage: IN THE MORNING
     Route: 048
     Dates: start: 20111129, end: 20120202

REACTIONS (5)
  - ULCER [None]
  - LOCAL SWELLING [None]
  - CAPSULE PHYSICAL ISSUE [None]
  - OROPHARYNGEAL BLISTERING [None]
  - DYSPNOEA [None]
